FAERS Safety Report 7266038-4 (Version None)
Quarter: 2011Q1

REPORT INFORMATION
  Report Type: 
  Country: None (occurrence: None)
  Receive Date: 20110131
  Receipt Date: 20110124
  Transmission Date: 20110831
  Serious: Yes (Hospitalization, Other)
  Sender: FDA-Public Use
  Company Number: GB-PFIZER INC-GB-WYE-G06601610

PATIENT
  Age: 63 Year
  Sex: Female

DRUGS (7)
  1. CYTARABINE [Suspect]
     Indication: ACUTE MYELOID LEUKAEMIA
     Dosage: 100 MG/M2, 20X/CYC
     Route: 065
     Dates: start: 20100705, end: 20100715
  2. FLUCONAZOLE [Concomitant]
     Route: 065
  3. DAUNORUBICIN [Suspect]
     Indication: ACUTE MYELOID LEUKAEMIA
     Dosage: 50 MG/M2, 3X/CYC
     Route: 065
     Dates: start: 20100705, end: 20100715
  4. AMBISOME [Suspect]
     Indication: PNEUMONIA FUNGAL
     Dosage: 3 MG/KG, 1X/DAY
     Route: 065
     Dates: end: 20100827
  5. ITRACONAZOLE [Concomitant]
     Dosage: UNK
     Route: 065
     Dates: start: 20100101
  6. GEMTUZUMAB OZOGAMICIN [Suspect]
     Indication: ACUTE MYELOID LEUKAEMIA
     Dosage: 3 MG, 1X/CYC
     Route: 065
     Dates: start: 20100705, end: 20100715
  7. ALLOPURINOL [Concomitant]
     Route: 065

REACTIONS (7)
  - CELLULITIS [None]
  - BONE MARROW FAILURE [None]
  - DEVICE RELATED INFECTION [None]
  - PANCYTOPENIA [None]
  - PNEUMONIA FUNGAL [None]
  - SEPSIS [None]
  - STAPHYLOCOCCAL INFECTION [None]
